FAERS Safety Report 17911301 (Version 2)
Quarter: 2020Q2

REPORT INFORMATION
  Report Type: Report from Study
  Country: CN (occurrence: CN)
  Receive Date: 20200618
  Receipt Date: 20200623
  Transmission Date: 20200714
  Serious: Yes (Other)
  Sender: FDA-Public Use
  Company Number: CN-ROCHE-2619583

PATIENT

DRUGS (5)
  1. OXALIPLATIN. [Suspect]
     Active Substance: OXALIPLATIN
     Indication: GASTRIC CANCER
     Dosage: DAY 1, INTRAVENOUS DRIP FOR 2 HOURS, 100 MG
     Route: 041
  2. METOCLOPRAMIDE. [Concomitant]
     Active Substance: METOCLOPRAMIDE
     Indication: PROPHYLAXIS OF NAUSEA AND VOMITING
     Route: 065
  3. DEXAMETHASONE. [Concomitant]
     Active Substance: DEXAMETHASONE
     Indication: ALLERGY PROPHYLAXIS
     Dosage: 30 TABLETS?6H AND 12H BEFORE CHEMOTHERAPY
     Route: 048
  4. ONDANSETRON [Concomitant]
     Active Substance: ONDANSETRON
     Indication: PROPHYLAXIS OF NAUSEA AND VOMITING
  5. CAPECITABINE. [Suspect]
     Active Substance: CAPECITABINE
     Indication: GASTRIC CANCER
     Dosage: HALF AN HOUR AFTER BREAKFAST AND DINNER, DAY 1-14?30 TABLETS
     Route: 048

REACTIONS (10)
  - White blood cell count decreased [Unknown]
  - Platelet count decreased [Unknown]
  - Stomatitis [Unknown]
  - Vomiting [Unknown]
  - Neurotoxicity [Unknown]
  - Diarrhoea [Unknown]
  - Palmar-plantar erythrodysaesthesia syndrome [Unknown]
  - Alopecia [Unknown]
  - Nausea [Unknown]
  - Anaemia [Unknown]
